FAERS Safety Report 9888298 (Version 1)
Quarter: 2014Q1

REPORT INFORMATION
  Report Type: Spontaneous
  Country: US (occurrence: US)
  Receive Date: 20140211
  Receipt Date: 20140211
  Transmission Date: 20141002
  Serious: No
  Sender: FDA-Public Use
  Company Number: US-PFIZER INC-2014037014

PATIENT
  Age: 51 Year
  Sex: Female
  Weight: 63.5 kg

DRUGS (2)
  1. EFFEXOR XR [Suspect]
     Indication: DEPRESSION
     Dosage: 75 MG, 2X/DAY
     Route: 048
     Dates: start: 20130801, end: 201401
  2. EFFEXOR XR [Suspect]
     Dosage: 75 MG, 1X/DAY
     Route: 048
     Dates: start: 201401

REACTIONS (6)
  - Vomiting [Unknown]
  - Headache [Unknown]
  - Weight increased [Not Recovered/Not Resolved]
  - Nausea [Not Recovered/Not Resolved]
  - Dizziness [Not Recovered/Not Resolved]
  - Fatigue [Not Recovered/Not Resolved]
